FAERS Safety Report 15394083 (Version 1)
Quarter: 2018Q3

REPORT INFORMATION
  Report Type: Spontaneous
  Country: US (occurrence: US)
  Receive Date: 20180911
  Receipt Date: 20180911
  Transmission Date: 20181010
  Serious: Yes (Other)
  Sender: FDA-Public Use
  Company Number: None

PATIENT
  Sex: Male

DRUGS (5)
  1. SABRIL [Suspect]
     Active Substance: VIGABATRIN
     Indication: INFANTILE SPASMS
     Route: 048
     Dates: start: 20180120
  2. CLONAZEPAM 0.5MG [Concomitant]
     Active Substance: CLONAZEPAM
  3. ACETAMIN 325MG [Concomitant]
  4. ZANTAC [Concomitant]
     Active Substance: RANITIDINE HYDROCHLORIDE
  5. IRON SUPPLMT 15MG/ML [Concomitant]

REACTIONS (1)
  - Muscle spasms [None]
